FAERS Safety Report 6566664-1 (Version None)
Quarter: 2010Q1

REPORT INFORMATION
  Report Type: 
  Country: None (occurrence: None)
  Receive Date: 20100202
  Receipt Date: 20100119
  Transmission Date: 20100710
  Serious: Yes (Other)
  Sender: FDA-Public Use
  Company Number: US-MYLANLABS-2010S1000764

PATIENT
  Age: 35 Year
  Sex: Female

DRUGS (4)
  1. LEVOTHYROXINE SODIUM [Suspect]
     Indication: AUTOIMMUNE THYROIDITIS
  2. LEVOTHYROXINE SODIUM [Suspect]
     Indication: DRUG ABUSE
  3. LEVOTHYROXINE SODIUM [Suspect]
  4. LEVOTHYROXINE SODIUM [Suspect]

REACTIONS (3)
  - CHOREOATHETOSIS [None]
  - HYPERTHYROIDISM [None]
  - INTENTIONAL DRUG MISUSE [None]
